FAERS Safety Report 22272522 (Version 1)
Quarter: 2023Q2

REPORT INFORMATION
  Report Type: Spontaneous
  Country: CN (occurrence: CN)
  Receive Date: 20230502
  Receipt Date: 20230502
  Transmission Date: 20230721
  Serious: Yes (Other)
  Sender: FDA-Public Use
  Company Number: None

PATIENT
  Age: 56 Year
  Sex: Male
  Weight: 70 kg

DRUGS (3)
  1. CYCLOPHOSPHAMIDE [Suspect]
     Active Substance: CYCLOPHOSPHAMIDE
     Indication: Non-Hodgkin^s lymphoma
     Dosage: AT 9:40 HRS, 1.2 G, QD, D1
     Route: 041
     Dates: start: 20230421, end: 20230421
  2. EPIRUBICIN HYDROCHLORIDE [Suspect]
     Active Substance: EPIRUBICIN HYDROCHLORIDE
     Indication: Non-Hodgkin^s lymphoma
     Dosage: AT 9:40 HRS, 80 MG, QD, D1
     Route: 041
     Dates: start: 20230421, end: 20230421
  3. VINCRISTINE SULFATE [Suspect]
     Active Substance: VINCRISTINE SULFATE
     Indication: Non-Hodgkin^s lymphoma
     Dosage: AT 9:40 HRS, 2 MG, QD, D1
     Route: 041
     Dates: start: 20230421, end: 20230421

REACTIONS (4)
  - Dysphagia [Recovered/Resolved]
  - Nausea [Recovered/Resolved]
  - Vomiting [Recovering/Resolving]
  - Discomfort [Recovered/Resolved]

NARRATIVE: CASE EVENT DATE: 20230421
